FAERS Safety Report 16889635 (Version 1)
Quarter: 2019Q4

REPORT INFORMATION
  Report Type: Spontaneous
  Country: NO (occurrence: NO)
  Receive Date: 20191007
  Receipt Date: 20191007
  Transmission Date: 20200122
  Serious: Yes (Hospitalization)
  Sender: FDA-Public Use
  Company Number: NO-PFIZER INC-2019425234

PATIENT
  Age: 52 Year
  Sex: Female

DRUGS (11)
  1. VAGIFEM [Concomitant]
     Active Substance: ESTRADIOL
     Dosage: UNK
  2. ZOPIKLON MYLAN [Concomitant]
     Active Substance: ZOPICLONE
     Dosage: UNK
  3. VOLTAROL FORTE [Concomitant]
     Active Substance: DICLOFENAC DIETHYLAMINE
     Dosage: UNK
  4. CALCIGRAN FORTE [Concomitant]
     Active Substance: CALCIUM CARBONATE\CHOLECALCIFEROL
     Dosage: UNK
  5. ZYRTEC [Concomitant]
     Active Substance: CETIRIZINE HYDROCHLORIDE
     Dosage: UNK
  6. NASONEX [Concomitant]
     Active Substance: MOMETASONE FUROATE
     Dosage: UNK
  7. FOSAMAX [Concomitant]
     Active Substance: ALENDRONATE SODIUM
     Dosage: UNK
  8. PREDNISOLON ALTERNOVA [Concomitant]
     Active Substance: PREDNISOLONE
     Dosage: UNK
  9. XELJANZ [Suspect]
     Active Substance: TOFACITINIB CITRATE
     Indication: RHEUMATOID ARTHRITIS
     Dosage: 10 MG 1X/DAY
     Route: 048
     Dates: start: 20181220, end: 20190415
  10. APOLAR [Concomitant]
     Dosage: UNK
  11. PARACET [Concomitant]
     Active Substance: ACETAMINOPHEN
     Dosage: UNK

REACTIONS (3)
  - Erythrosis [Recovering/Resolving]
  - Off label use [Recovered/Resolved]
  - Poikiloderma [Recovered/Resolved]

NARRATIVE: CASE EVENT DATE: 20181220
